FAERS Safety Report 6045296-8 (Version None)
Quarter: 2009Q1

REPORT INFORMATION
  Report Type: 
  Country: None (occurrence: None)
  Receive Date: 20090121
  Receipt Date: 20090112
  Transmission Date: 20090719
  Serious: Yes (Other)
  Sender: FDA-Public Use
  Company Number: PHEH2007US12631

PATIENT
  Sex: Female

DRUGS (5)
  1. AREDIA [Suspect]
     Indication: MULTIPLE MYELOMA
  2. ZOMETA [Suspect]
     Indication: MULTIPLE MYELOMA
  3. THALIDOMIDE [Concomitant]
     Dosage: UNK
     Dates: end: 20071001
  4. HYDROCODONE BITARTRATE [Concomitant]
  5. MS CONTIN [Concomitant]

REACTIONS (18)
  - ANHEDONIA [None]
  - ANXIETY [None]
  - BLADDER OPERATION [None]
  - BONE PAIN [None]
  - COLON OPERATION [None]
  - DEFORMITY [None]
  - DIVERTICULUM [None]
  - DYSPEPSIA [None]
  - EMOTIONAL DISTRESS [None]
  - EXOSTOSIS [None]
  - JAW OPERATION [None]
  - LIFE EXPECTANCY SHORTENED [None]
  - LYMPHADENOPATHY [None]
  - OSTEONECROSIS [None]
  - PAIN [None]
  - SCOLIOSIS [None]
  - SINUS DISORDER [None]
  - SPONDYLOLISTHESIS [None]
